FAERS Safety Report 6121758-X (Version None)
Quarter: 2009Q1

REPORT INFORMATION
  Report Type: 
  Country: None (occurrence: None)
  Receive Date: 20090317
  Receipt Date: 20090311
  Transmission Date: 20090719
  Serious: Yes (Other)
  Sender: FDA-Public Use
  Company Number: US-B.I. PHARMACEUTICALS,INC./RIDGEFIELD-2009-BP-03081BP

PATIENT
  Age: 65 Year
  Sex: Male

DRUGS (2)
  1. COMBIVENT [Suspect]
     Route: 055
  2. NIACIN [Concomitant]
     Indication: DRUG USE FOR UNKNOWN INDICATION

REACTIONS (7)
  - BLOOD CHOLESTEROL INCREASED [None]
  - BLOOD PRESSURE INCREASED [None]
  - CARDIAC DISORDER [None]
  - HEART RATE INCREASED [None]
  - INITIAL INSOMNIA [None]
  - OROPHARYNGEAL PAIN [None]
  - TOTAL LUNG CAPACITY DECREASED [None]
